FAERS Safety Report 7335748-2 (Version None)
Quarter: 2011Q1

REPORT INFORMATION
  Report Type: 
  Country: None (occurrence: None)
  Receive Date: 20110307
  Receipt Date: 20110228
  Transmission Date: 20110831
  Serious: Yes (Other)
  Sender: FDA-Public Use
  Company Number: B0704193A

PATIENT
  Sex: Female

DRUGS (2)
  1. ORAL CONTRACEPTIVE [Concomitant]
     Route: 048
  2. LAMICTAL [Suspect]
     Dosage: 100MG PER DAY
     Route: 048

REACTIONS (3)
  - PREGNANCY ON ORAL CONTRACEPTIVE [None]
  - DRUG INTERACTION [None]
  - DRUG EXPOSURE DURING PREGNANCY [None]
